FAERS Safety Report 24525350 (Version 1)
Quarter: 2024Q4

REPORT INFORMATION
  Report Type: Spontaneous
  Country: US (occurrence: US)
  Receive Date: 20241019
  Receipt Date: 20241019
  Transmission Date: 20250115
  Serious: Yes (Other)
  Sender: AMGEN
  Company Number: US-AMGEN-USASP2024205989

PATIENT
  Age: 74 Year
  Sex: Male

DRUGS (2)
  1. PREDNISONE [Suspect]
     Active Substance: PREDNISONE
     Indication: Metastases to meninges
     Dosage: UNK
     Route: 048
  2. ACYCLOVIR [Concomitant]
     Active Substance: ACYCLOVIR
     Indication: Metastases to meninges
     Dosage: UNK
     Route: 040

REACTIONS (2)
  - Metastases to meninges [Unknown]
  - Off label use [Unknown]
